FAERS Safety Report 26006420 (Version 1)
Quarter: 2025Q4

REPORT INFORMATION
  Report Type: Spontaneous
  Country: EU (occurrence: EU)
  Receive Date: 20251106
  Receipt Date: 20251106
  Transmission Date: 20260118
  Serious: Yes (Other)
  Sender: RANBAXY
  Company Number: EU-URPL-DML-MLP.4401.1.943.2024

PATIENT
  Age: 67 Year
  Sex: Male
  Weight: 68 kg

DRUGS (2)
  1. GEMCITABINE [Suspect]
     Active Substance: GEMCITABINE
     Indication: Product used for unknown indication
     Dosage: 1700 MILLIGRAM/KILOGRAM
     Route: 042
     Dates: start: 20231121, end: 20231121
  2. CARBOPLATIN [Suspect]
     Active Substance: CARBOPLATIN
     Indication: Product used for unknown indication
     Dosage: 550 MILLIGRAM/KILOGRAM
     Route: 042
     Dates: start: 20231121, end: 20231121

REACTIONS (4)
  - Thrombocytopenia [Unknown]
  - Haemorrhagic diathesis [Unknown]
  - Anaemia [Unknown]
  - Ascites [Unknown]

NARRATIVE: CASE EVENT DATE: 20231205
